FAERS Safety Report 10759625 (Version 1)
Quarter: 2015Q1

REPORT INFORMATION
  Report Type: Spontaneous
  Country: CA (occurrence: CA)
  Receive Date: 20150203
  Receipt Date: 20150203
  Transmission Date: 20150721
  Serious: Yes (Hospitalization)
  Sender: FDA-Public Use
  Company Number: CA-B.I. PHARMACEUTICALS,INC./RIDGEFIELD-2015-BI-05457CN

PATIENT
  Age: 67 Year
  Sex: Female

DRUGS (2)
  1. PRADAXA [Suspect]
     Active Substance: DABIGATRAN ETEXILATE MESYLATE
     Indication: ATRIAL FIBRILLATION
     Dosage: 300 MCG
     Route: 048
     Dates: start: 2012
  2. BISOPROLOL [Concomitant]
     Active Substance: BISOPROLOL
     Indication: HEART VALVE INCOMPETENCE
     Route: 065

REACTIONS (1)
  - Heart valve incompetence [Not Recovered/Not Resolved]
